FAERS Safety Report 25716355 (Version 1)
Quarter: 2025Q3

REPORT INFORMATION
  Report Type: Spontaneous
  Country: CH (occurrence: CH)
  Receive Date: 20250822
  Receipt Date: 20250822
  Transmission Date: 20251021
  Serious: Yes (Hospitalization)
  Sender: SANDOZ
  Company Number: CH-SANDOZ-SDZ2025CH059157

PATIENT

DRUGS (1)
  1. MYCOPHENOLATE MOFETIL [Suspect]
     Active Substance: MYCOPHENOLATE MOFETIL
     Indication: Myositis
     Dosage: 2 G, QD
     Route: 065

REACTIONS (3)
  - Enteritis [Recovering/Resolving]
  - Myositis [Unknown]
  - Condition aggravated [Unknown]
